FAERS Safety Report 13618457 (Version 1)
Quarter: 2017Q2

REPORT INFORMATION
  Report Type: Spontaneous
  Country: US (occurrence: US)
  Receive Date: 20170606
  Receipt Date: 20170606
  Transmission Date: 20170830
  Serious: No
  Sender: FDA-Public Use
  Company Number: US-ABBVIE-17P-163-1901237-00

PATIENT
  Age: 67 Year
  Sex: Female

DRUGS (2)
  1. MARINOL [Suspect]
     Active Substance: DRONABINOL
     Indication: DEPRESSION
  2. MARINOL [Suspect]
     Active Substance: DRONABINOL
     Indication: POST-TRAUMATIC STRESS DISORDER
     Route: 065
     Dates: start: 2015, end: 201612

REACTIONS (2)
  - Depression [Not Recovered/Not Resolved]
  - Fear [Not Recovered/Not Resolved]

NARRATIVE: CASE EVENT DATE: 201701
